FAERS Safety Report 4996245-2 (Version None)
Quarter: 2006Q2

REPORT INFORMATION
  Report Type: 
  Country: None (occurrence: None)
  Receive Date: 20060505
  Receipt Date: 20060421
  Transmission Date: 20061013
  Serious: Yes (Death, Hospitalization)
  Sender: FDA-Public Use
  Company Number: 2006000876

PATIENT
  Age: 72 Year
  Sex: Female

DRUGS (1)
  1. ERLOTINIB (TABLET) (ERLOTINIB HCL) [Suspect]
     Indication: NON-SMALL CELL LUNG CANCER
     Dosage: 150 MG (QD), ORAL
     Route: 048
     Dates: start: 20060108, end: 20060223

REACTIONS (6)
  - ABDOMINAL PAIN [None]
  - CARDIO-RESPIRATORY ARREST [None]
  - DUODENAL ULCER PERFORATION [None]
  - GENERAL PHYSICAL HEALTH DETERIORATION [None]
  - PNEUMOPERITONEUM [None]
  - PYREXIA [None]
